FAERS Safety Report 21226972 (Version 1)
Quarter: 2022Q3

REPORT INFORMATION
  Report Type: Spontaneous
  Country: US (occurrence: US)
  Receive Date: 20220818
  Receipt Date: 20220818
  Transmission Date: 20221026
  Serious: No
  Sender: FDA-Public Use
  Company Number: US-BAYER-2022A111746

PATIENT
  Sex: Female

DRUGS (1)
  1. MIRALAX [Suspect]
     Active Substance: POLYETHYLENE GLYCOL 3350
     Indication: Diagnostic procedure
     Dosage: UNK 96 TABLESPOON ON 32 OUNCES OF GATORADE)
     Route: 048
     Dates: start: 20220809, end: 20220809

REACTIONS (3)
  - Off label use [Recovered/Resolved with Sequelae]
  - Product contamination physical [None]
  - Product prescribing issue [Recovered/Resolved with Sequelae]

NARRATIVE: CASE EVENT DATE: 20220809
